FAERS Safety Report 7645021-0 (Version None)
Quarter: 2011Q3

REPORT INFORMATION
  Report Type: 
  Country: None (occurrence: None)
  Receive Date: 20110729
  Receipt Date: 20110719
  Transmission Date: 20111222
  Serious: Yes (Hospitalization)
  Sender: FDA-Public Use
  Company Number: JP-GLAXOSMITHKLINE-B0713784A

PATIENT
  Sex: Male
  Weight: 50 kg

DRUGS (16)
  1. KYTRIL [Concomitant]
     Dosage: 3MG PER DAY
     Dates: end: 20061002
  2. LANSOPRAZOLE [Concomitant]
     Dosage: 15MG PER DAY
     Route: 048
  3. AZUNOL [Concomitant]
     Route: 002
     Dates: start: 20061001, end: 20061001
  4. ZOVIRAX [Concomitant]
     Dosage: 1000MG PER DAY
     Route: 048
     Dates: end: 20061105
  5. FUNGUARD [Concomitant]
     Dosage: 50MG PER DAY
     Route: 042
     Dates: end: 20061030
  6. ALKERAN [Suspect]
     Indication: CORD BLOOD TRANSPLANT THERAPY
     Dosage: 58MGM2 PER DAY
     Route: 042
     Dates: start: 20060930, end: 20061001
  7. TACROLIMUS [Concomitant]
     Indication: IMMUNOSUPPRESSION
     Dosage: 2MG PER DAY
     Route: 065
     Dates: start: 20061002
  8. ROHYPNOL [Concomitant]
     Route: 048
     Dates: end: 20061204
  9. URSO 250 [Concomitant]
     Dosage: 300MG PER DAY
     Route: 048
  10. FLUDARA [Suspect]
     Indication: CORD BLOOD TRANSPLANT THERAPY
     Dosage: 36MGM2 PER DAY
     Route: 042
     Dates: start: 20060925, end: 20060929
  11. GRAN [Concomitant]
     Dates: start: 20061004, end: 20061012
  12. CIPROFLOXACIN HCL [Concomitant]
     Dosage: 600MG PER DAY
     Route: 048
     Dates: end: 20061015
  13. ISODINE GARGLE [Concomitant]
     Route: 002
     Dates: start: 20061001, end: 20061026
  14. MAGMITT [Concomitant]
     Dosage: 990MG PER DAY
     Route: 048
     Dates: end: 20061001
  15. FUROSEMIDE [Concomitant]
     Dosage: 10MG PER DAY
     Dates: start: 20061001, end: 20061022
  16. ATARAX [Concomitant]
     Dosage: 25MG PER DAY
     Dates: start: 20061001

REACTIONS (2)
  - FEBRILE NEUTROPENIA [None]
  - CYTOMEGALOVIRUS VIRAEMIA [None]
